FAERS Safety Report 7908447-3 (Version None)
Quarter: 2011Q4

REPORT INFORMATION
  Report Type: 
  Country: None (occurrence: None)
  Receive Date: 20111111
  Receipt Date: 20101220
  Transmission Date: 20120403
  Serious: Yes (Other)
  Sender: FDA-Public Use
  Company Number: US-BAYER-2011-108995

PATIENT
  Age: 53 Year
  Sex: Female

DRUGS (5)
  1. INTERFERON BETA-1B [Suspect]
     Indication: MULTIPLE SCLEROSIS
     Dosage: 6 MIU, QOD
     Route: 058
     Dates: start: 20101117
  2. PROVIGIL [Concomitant]
  3. OXYBUTYNIN [Concomitant]
  4. SIMVASTATIN [Concomitant]
  5. APLENZEN [Concomitant]

REACTIONS (4)
  - BED REST [None]
  - ASTHENIA [None]
  - NERVOUSNESS [None]
  - FATIGUE [None]
